FAERS Safety Report 26023597 (Version 1)
Quarter: 2025Q4

REPORT INFORMATION
  Report Type: Spontaneous
  Country: EU (occurrence: EU)
  Receive Date: 20251111
  Receipt Date: 20251111
  Transmission Date: 20260117
  Serious: Yes (Other)
  Sender: AMGEN
  Company Number: None

PATIENT
  Age: 44 Year
  Sex: Female

DRUGS (4)
  1. DENOSUMAB [Suspect]
     Active Substance: DENOSUMAB
     Indication: Bone loss
     Dosage: DENOSUMAB 60 MG 1 SUBCUTANEOUS INJECTION EVERY 6 MONTH
     Route: 058
  2. TRIPTORELIN [Concomitant]
     Active Substance: TRIPTORELIN
     Indication: Breast cancer
     Dosage: TRIPTORELIN 3.75 MG 1 INTRAMUSCULAR PER MONTH
     Route: 030
     Dates: start: 202407
  3. EXEMESTANE [Concomitant]
     Active Substance: EXEMESTANE
     Indication: Breast cancer
     Dosage: EXEMESTANE 25 MG 1 TABLET PER DAY
     Route: 048
     Dates: start: 202407
  4. CHOLECALCIFEROL [Concomitant]
     Active Substance: CHOLECALCIFEROL
     Indication: Vitamin D deficiency
     Dosage: CHOLECALCIFEROL 10,000 IU/ML 40 DROPS PER WEEK
     Route: 048
     Dates: start: 202407

REACTIONS (1)
  - Erysipelas [Recovered/Resolved]

NARRATIVE: CASE EVENT DATE: 20250409
